FAERS Safety Report 6321590-8 (Version None)
Quarter: 2009Q3

REPORT INFORMATION
  Report Type: 
  Country: None (occurrence: None)
  Receive Date: 20090820
  Receipt Date: 20090820
  Transmission Date: 20100115
  Serious: Yes (Other)
  Sender: FDA-Public Use
  Company Number: None

PATIENT
  Age: 56 Year
  Sex: Female
  Weight: 96.1626 kg

DRUGS (2)
  1. VASERETIC [Suspect]
     Indication: HYPERTENSION
     Dosage: 10-25 BID PO BRAND NAME- MORE THAN 11Y
     Route: 048
  2. ATIVAN [Suspect]
     Indication: ANXIETY
     Dosage: 1MG TID PO BRAND NAME-MORE THAN 11YR
     Route: 048

REACTIONS (6)
  - ABDOMINAL PAIN [None]
  - DIARRHOEA [None]
  - HYPOAESTHESIA [None]
  - NERVOUSNESS [None]
  - PRODUCT SUBSTITUTION ISSUE [None]
  - RASH [None]
